FAERS Safety Report 10654267 (Version 2)
Quarter: 2014Q4

REPORT INFORMATION
  Report Type: Spontaneous
  Country: US (occurrence: US)
  Receive Date: 20141216
  Receipt Date: 20141222
  Transmission Date: 20150529
  Serious: Yes (Other)
  Sender: FDA-Public Use
  Company Number: US-PFIZER INC-2014335562

PATIENT
  Age: 48 Year
  Sex: Female
  Weight: 83 kg

DRUGS (44)
  1. LYRICA [Suspect]
     Active Substance: PREGABALIN
     Dosage: 200 MG, 2X/DAY
     Route: 048
  2. LYRICA [Suspect]
     Active Substance: PREGABALIN
     Dosage: 2 CAPSULES EVERY MORNING AND 1 CAPSULE AT BEDTIME)
     Route: 048
  3. OXYCODONE [Concomitant]
     Active Substance: OXYCODONE
     Dosage: 10 MG, UNK
  4. CYCLOBENZAPRINE [Concomitant]
     Active Substance: CYCLOBENZAPRINE
     Dosage: 5 MG, UNK
  5. MORPHINE SULFATE EXTENDED-RELEASE [Concomitant]
     Active Substance: MORPHINE SULFATE
     Dosage: 30 MG, 4X/DAY (1 TABLET EVERY 6 HOURS)
     Route: 048
  6. POTASSIUM CITRATE. [Concomitant]
     Active Substance: POTASSIUM CITRATE
     Dosage: 10 MEQ (1,080 MG), 2X/DAY
     Route: 048
  7. CAMBIA [Concomitant]
     Active Substance: DICLOFENAC POTASSIUM
     Dosage: 50 MG, 1X/DAY (AS NEEDED FOR 9 DAYS)
     Route: 048
  8. PLAQUENIL [Concomitant]
     Active Substance: HYDROXYCHLOROQUINE SULFATE
     Dosage: UNK
  9. ALBUTEROL. [Concomitant]
     Active Substance: ALBUTEROL
     Dosage: UNK
  10. CLONAZEPAM. [Concomitant]
     Active Substance: CLONAZEPAM
     Indication: RESTLESS LEGS SYNDROME
     Dosage: 0.5 MG, 1X/DAY (AT BEDTIME)
  11. HYDROXYCHLOROQUINE [Concomitant]
     Active Substance: HYDROXYCHLOROQUINE
     Dosage: 200 MG, 2X/DAY (1 TWO TIMES A DAY)
  12. MSO4 [Concomitant]
     Active Substance: MORPHINE SULFATE
     Dosage: 30 MG, 3X/DAY (EVERY 8 HOURS)
     Route: 048
  13. OXYCODONE [Concomitant]
     Active Substance: OXYCODONE
     Dosage: 10 MG, 3X/DAY AS NEEDED
     Route: 048
  14. CYCLOBENZAPRINE [Concomitant]
     Active Substance: CYCLOBENZAPRINE
     Dosage: 6 MG, UNK
  15. FUROSEMIDE. [Concomitant]
     Active Substance: FUROSEMIDE
     Dosage: 20 MG, 1X/DAY
     Route: 048
  16. SULFAMETHOXAZOLE-TRIMETHOPRIM (SMZ) [Concomitant]
     Active Substance: SULFAMETHOXAZOLE\TRIMETHOPRIM
     Dosage: 1 DF, 2X/DAY (SULFAMETHOXAZOLE 800 MG-TRIMETHOPRIM 160 MG TABLET)
     Route: 048
  17. TRIAMTERENE AND HYDROCHLOROTHIZIDE [Concomitant]
     Active Substance: HYDROCHLOROTHIAZIDE\TRIAMTERENE
     Dosage: 1 DF, DAILY (TRIAMTERENE 37.5 MG-HYDROCHLOROTHIAZIDE 25 MG)
     Route: 048
  18. HYDROCHLOROTHIAZIDE. [Concomitant]
     Active Substance: HYDROCHLOROTHIAZIDE
     Dosage: 25 MG, UNK
  19. VALIUM [Concomitant]
     Active Substance: DIAZEPAM
     Dosage: UNK
  20. FENOFIBRATE. [Concomitant]
     Active Substance: FENOFIBRATE
     Dosage: 160 MG, 1X/DAY
     Route: 048
  21. LASIX [Concomitant]
     Active Substance: FUROSEMIDE
     Dosage: UNK
  22. HYDROCODONE W/ACETAMINOPHEN [Concomitant]
     Active Substance: ACETAMINOPHEN\HYDROCODONE BITARTRATE
     Indication: PAIN
     Dosage: 1 DF, 4X/DAY (HYDROCODONE 10 MG-ACETAMINOPHEN 325 MG TABLET 1 TABLET AS NEEDED)
  23. PAROXETINE [Concomitant]
     Active Substance: PAROXETINE\PAROXETINE HYDROCHLORIDE
     Dosage: 20 MG, 1X/DAY (1 TABLET EVERY DAY)
  24. POTASSIUM CHLORIDE ER [Concomitant]
     Active Substance: POTASSIUM CHLORIDE
     Dosage: 10 MEQ, 2X/DAY
     Route: 048
  25. OXYCODONE [Concomitant]
     Active Substance: OXYCODONE
     Dosage: 10 MG, 4X/DAY (EVERY 6 HOURS) AS NEEDED
     Route: 048
  26. GABAPENTIN. [Concomitant]
     Active Substance: GABAPENTIN
     Dosage: 600 MG, 1X/DAY (AT BEDTIME)
     Route: 048
  27. METHYLPREDNISOLONE. [Concomitant]
     Active Substance: METHYLPREDNISOLONE
     Dosage: 4 MG TABLES IN A DOSE PACK, UNK
  28. POTASSIUM CHLORIDE ER [Concomitant]
     Active Substance: POTASSIUM CHLORIDE
     Dosage: 10 MEQ, UNK
  29. ZOLPIDEM [Concomitant]
     Active Substance: ZOLPIDEM\ZOLPIDEM TARTRATE
     Dosage: 10 MG, 1X/DAY (AT BEDTIME)
     Route: 048
  30. EFFEXOR [Suspect]
     Active Substance: VENLAFAXINE HYDROCHLORIDE
     Dosage: UNK
  31. SKELAXIN [Concomitant]
     Active Substance: METAXALONE
     Dosage: UNK
  32. AMBIEN [Concomitant]
     Active Substance: ZOLPIDEM TARTRATE
     Dosage: 1 DF, 1X/DAY (1 EVERY DAY AT BEDTIME)
     Dates: start: 20130909
  33. BUPROPION HCL [Concomitant]
     Active Substance: BUPROPION HYDROCHLORIDE
     Dosage: 150 MG, 1X/DAY (EVERY MORNING)
  34. PROAIR HFA [Concomitant]
     Active Substance: ALBUTEROL SULFATE
     Indication: DYSPNOEA
     Dosage: 180 ?G, 4X/DAY ( 90 MCG/ACTUATION AEROSOL INHALER INHALE 2 PUFFS 4 TIMES A DAY AS NEEDED)
     Route: 055
  35. VENLAFAXINE ER [Concomitant]
     Active Substance: VENLAFAXINE HYDROCHLORIDE
     Dosage: 150 MG, 1X/DAY (TAKE ONE CAPSULE EVERY MORNING)
     Route: 048
  36. WELLBUTRIN [Concomitant]
     Active Substance: BUPROPION HYDROCHLORIDE
     Dosage: UNK
  37. OXYCODONE [Concomitant]
     Active Substance: OXYCODONE
     Dosage: 5 MG, 4X/DAY AS NEEDED
     Route: 048
  38. DIAZEPAM. [Concomitant]
     Active Substance: DIAZEPAM
     Indication: MUSCLE SPASMS
     Dosage: 5 MG, 3X/DAY AS NEEDED
     Route: 048
  39. MORPHINE SULFATE EXTENDED-RELEASE [Concomitant]
     Active Substance: MORPHINE SULFATE
     Dosage: 30 MG, 3X/DAY (1 TABLET EVERY 8 HOURS)
     Route: 048
  40. PAROXETINE [Concomitant]
     Active Substance: PAROXETINE\PAROXETINE HYDROCHLORIDE
     Dosage: 20 MG, UNK
  41. PILOCARPINE [Concomitant]
     Active Substance: PILOCARPINE
     Dosage: 5 MG, UNK
  42. POTASSIUM [Concomitant]
     Active Substance: POTASSIUM
     Dosage: 1 DF, 2X/DAY (1 TWO TIMES A DAY)
     Dates: start: 20130909
  43. CEPHALEXIN. [Concomitant]
     Active Substance: CEPHALEXIN
     Dosage: 500 MG, 2X/DAY (FOR 7 DAYS)
     Route: 048
  44. EXALGO [Concomitant]
     Active Substance: HYDROMORPHONE HYDROCHLORIDE
     Dosage: 12 MG, 1X/DAY (TAKE 1 TABLET EVERY 24 HRS)
     Route: 048

REACTIONS (33)
  - Abdominal pain [Unknown]
  - Weight increased [Unknown]
  - Pollakiuria [Unknown]
  - Collagen disorder [Unknown]
  - Insomnia [Unknown]
  - Dry skin [Unknown]
  - Arthralgia [Unknown]
  - Nerve compression [Unknown]
  - Mononeuritis [Unknown]
  - Asthenia [Unknown]
  - Myositis [Unknown]
  - Cough [Unknown]
  - Hypercholesterolaemia [Unknown]
  - Muscle spasms [Unknown]
  - Pancreatitis [Unknown]
  - Hypertension [Unknown]
  - Pain [Unknown]
  - Post laminectomy syndrome [Unknown]
  - Depression [Unknown]
  - Corrective lens user [Unknown]
  - Gait disturbance [Unknown]
  - Myalgia [Unknown]
  - Hyperlipidaemia [Unknown]
  - Hyperaesthesia [Unknown]
  - Poor quality sleep [Unknown]
  - Headache [Unknown]
  - Sjogren^s syndrome [Unknown]
  - Butterfly rash [Unknown]
  - Back pain [Unknown]
  - Dysuria [Unknown]
  - Fibromyalgia [Unknown]
  - Hypovitaminosis [Unknown]
  - Discomfort [Unknown]
